FAERS Safety Report 9387540 (Version 1)
Quarter: 2013Q3

REPORT INFORMATION
  Report Type: Spontaneous
  Country: FR (occurrence: FR)
  Receive Date: 20130708
  Receipt Date: 20130708
  Transmission Date: 20140515
  Serious: Yes (Other)
  Sender: FDA-Public Use
  Company Number: FR-PFIZER INC-2013197770

PATIENT
  Age: 43 Year
  Sex: Male

DRUGS (4)
  1. EFFEXOR [Suspect]
     Dosage: UNK
     Route: 048
  2. NEURONTIN [Suspect]
     Dosage: UNK
     Route: 048
  3. ATARAX [Suspect]
     Dosage: 25 MG, 1X/DAY
     Route: 048
     Dates: start: 2012
  4. ZONDAR [Suspect]
     Dosage: UNK
     Route: 048

REACTIONS (1)
  - Macular oedema [Not Recovered/Not Resolved]
